FAERS Safety Report 12234191 (Version 1)
Quarter: 2016Q2

REPORT INFORMATION
  Report Type: Spontaneous
  Country: US (occurrence: None)
  Receive Date: 20160401
  Receipt Date: 20160401
  Transmission Date: 20160815
  Serious: No
  Sender: FDA-Public Use
  Company Number: None

PATIENT
  Age: 63 Year
  Sex: Female

DRUGS (1)
  1. ESZOPICLONE 3MG TEVA [Suspect]
     Active Substance: ESZOPICLONE
     Indication: INSOMNIA
     Dosage: 02/15 TO 02/20 3MG 1 HS PO
     Route: 048

REACTIONS (1)
  - Dysgeusia [None]

NARRATIVE: CASE EVENT DATE: 20160215
